FAERS Safety Report 4437730-1 (Version None)
Quarter: 2004Q3

REPORT INFORMATION
  Report Type: 
  Country: None (occurrence: None)
  Receive Date: 20040827
  Receipt Date: 20040816
  Transmission Date: 20050211
  Serious: Yes (Other)
  Sender: FDA-Public Use
  Company Number: 8007035

PATIENT
  Age: 34 Year
  Sex: Male
  Weight: 82 kg

DRUGS (4)
  1. KEPPRA [Suspect]
     Indication: EPILEPSY
     Dosage: PO
     Route: 048
     Dates: start: 19990101
  2. SOLIAN [Suspect]
     Indication: EPILEPSY
     Dosage: PO
     Route: 048
     Dates: start: 19990101
  3. LAMICTAL [Suspect]
     Indication: EPILEPSY
     Dosage: PO
     Route: 048
     Dates: start: 19990101
  4. RESOCHIN [Concomitant]

REACTIONS (2)
  - ANTINUCLEAR ANTIBODY POSITIVE [None]
  - SYSTEMIC LUPUS ERYTHEMATOSUS [None]
